FAERS Safety Report 8954034 (Version 1)
Quarter: 2012Q4

REPORT INFORMATION
  Report Type: 
  Country: FR (occurrence: FR)
  Receive Date: 20121207
  Receipt Date: 20121207
  Transmission Date: 20130627
  Serious: Yes (Hospitalization)
  Sender: FDA-Public Use
  Company Number: FR-BRISTOL-MYERS SQUIBB COMPANY-17164914

PATIENT
  Age: 79 Year
  Sex: Male

DRUGS (1)
  1. COUMADIN TABS 2 MG [Suspect]
     Dosage: 1df=1.5 tab/d 5 days a week and then 1.75 tabs/d:Unk-03Sep12
     Route: 048
     Dates: end: 20120903

REACTIONS (4)
  - Anaemia [Recovered/Resolved]
  - Melaena [Recovered/Resolved]
  - Haematemesis [Recovered/Resolved]
  - Oesophagitis [Unknown]
